FAERS Safety Report 16750962 (Version 4)
Quarter: 2019Q4

REPORT INFORMATION
  Report Type: Spontaneous
  Country: US (occurrence: US)
  Receive Date: 20190828
  Receipt Date: 20191007
  Transmission Date: 20200122
  Serious: Yes (Other)
  Sender: FDA-Public Use
  Company Number: US-PFIZER INC-2019365149

PATIENT
  Age: 12 Year
  Sex: Male
  Weight: 58 kg

DRUGS (1)
  1. DOXYCYCLINE HYCLATE. [Suspect]
     Active Substance: DOXYCYCLINE HYCLATE
     Indication: ACNE
     Dosage: 100 MG, 2X/DAY
     Dates: start: 20160524, end: 20160615

REACTIONS (5)
  - Skin striae [Not Recovered/Not Resolved]
  - Cortisol increased [Not Recovered/Not Resolved]
  - Tooth impacted [Not Recovered/Not Resolved]
  - Blood testosterone decreased [Recovered/Resolved]
  - Growth retardation [Not Recovered/Not Resolved]

NARRATIVE: CASE EVENT DATE: 20160604
